FAERS Safety Report 6817814-0 (Version None)
Quarter: 2010Q3

REPORT INFORMATION
  Report Type: 
  Country: None (occurrence: None)
  Receive Date: 20100706
  Receipt Date: 20100624
  Transmission Date: 20110219
  Serious: Yes (Other)
  Sender: FDA-Public Use
  Company Number: JP-ELI_LILLY_AND_COMPANY-JP200912001323

PATIENT
  Sex: Female
  Weight: 48 kg

DRUGS (3)
  1. EVISTA [Suspect]
     Indication: OSTEOPOROSIS
     Dosage: 60 MG, DAILY (1/D)
     Route: 048
     Dates: start: 20050702, end: 20091209
  2. LOSARTAN POTASSIUM AND HYDROCHLOROTHIAZIDE [Concomitant]
     Indication: HYPERTENSION
     Dosage: 60 MG, DAILY (1/D)
     Route: 048
     Dates: start: 20071128
  3. PLATIBIT [Concomitant]
     Indication: OSTEOPOROSIS
     Dosage: 0.25 UG, DAILY (1/D)
     Route: 048
     Dates: start: 20090819, end: 20091209

REACTIONS (4)
  - HYPERCEMENTOSIS [None]
  - ORAL FIBROMA [None]
  - OSTEOMYELITIS [None]
  - OSTEONECROSIS OF JAW [None]
